FAERS Safety Report 7542420-2 (Version None)
Quarter: 2011Q2

REPORT INFORMATION
  Report Type: 
  Country: None (occurrence: None)
  Receive Date: 20110524
  Receipt Date: 20110221
  Transmission Date: 20111010
  Serious: No
  Sender: FDA-Public Use
  Company Number: 011038

PATIENT
  Sex: Female
  Weight: 90 kg

DRUGS (2)
  1. CIMZIA [Suspect]
     Indication: CROHN'S DISEASE
     Dosage: 400 MG DOSES OF CERTOLIZUMAB PEGOL SUBCUTANEOUS
     Route: 058
     Dates: start: 20100401, end: 20100501
  2. IMURAN [Concomitant]

REACTIONS (3)
  - CROHN'S DISEASE [None]
  - CAESAREAN SECTION [None]
  - DRUG EXPOSURE DURING PREGNANCY [None]
